FAERS Safety Report 5595086-5 (Version None)
Quarter: 2008Q1

REPORT INFORMATION
  Report Type: 
  Country: None (occurrence: None)
  Receive Date: 20080117
  Receipt Date: 20080110
  Transmission Date: 20080703
  Serious: Yes (Hospitalization)
  Sender: FDA-Public Use
  Company Number: ES-SANOFI-SYNTHELABO-D01200705062

PATIENT
  Sex: Male
  Weight: 82.7 kg

DRUGS (11)
  1. OXALIPLATIN [Suspect]
     Route: 042
     Dates: start: 20061011, end: 20061011
  2. FLUOROURACIL [Suspect]
     Dosage: 400 MG/M?, IV BOLUS D1+D2 FOLLOWED BY 5-FU 2400 MG/M? OVER 46-HOUR CONTINUOUS INFUSION.
     Route: 042
     Dates: start: 20061011, end: 20061011
  3. SR57746 OR PLACEBO [Suspect]
     Indication: NEUROLOGICAL SYMPTOM
     Route: 048
     Dates: start: 20060523, end: 20061012
  4. ACTOS [Concomitant]
  5. COLEMIN [Concomitant]
  6. ADIRO [Concomitant]
  7. TENORMIN [Concomitant]
  8. RENITEC [Concomitant]
  9. UNIDIAMICRON [Concomitant]
  10. DIAMBEN [Concomitant]
  11. LEUCOVORIN [Suspect]
     Route: 042
     Dates: start: 20061011, end: 20061011

REACTIONS (1)
  - CARDIAC FAILURE [None]
